FAERS Safety Report 8731898 (Version 3)
Quarter: 2012Q4

REPORT INFORMATION
  Report Type: Report from Study
  Country: US (occurrence: US)
  Receive Date: 20120820
  Receipt Date: 20121106
  Transmission Date: 20130627
  Serious: Yes (Life-Threatening, Hospitalization, Disabling, Other)
  Sender: FDA-Public Use
  Company Number: US-GENZYME-MOZO-1000741

PATIENT
  Age: 59 Year
  Sex: Female
  Weight: 57.7 kg

DRUGS (16)
  1. MOZOBIL [Suspect]
     Indication: ACUTE MYELOID LEUKAEMIA
     Dosage: 14736 mcg, days 1, 3, 5, 7, 9, 11, 13
     Route: 058
     Dates: start: 20120620, end: 20120626
  2. MOZOBIL [Suspect]
     Dosage: 240 mg/kg, Days 1, 3, 5, 7, 9, 11, 13
     Route: 065
     Dates: start: 20120718, end: 20120730
  3. SORAFENIB [Suspect]
     Indication: ACUTE MYELOID LEUKAEMIA
     Dosage: 800 mg, qd
     Route: 048
     Dates: start: 20120718, end: 20120722
  4. SORAFENIB [Suspect]
     Dosage: 600 mg, bid
     Route: 048
     Dates: start: 20120726, end: 20120803
  5. GRANULOCYTE COLONY STIMULATING FACTOR [Suspect]
     Indication: ACUTE MYELOID LEUKAEMIA
     Dosage: 600 mcg, q48 hours
     Route: 058
     Dates: start: 20120718, end: 20120730
  6. FLUCONAZOL [Suspect]
     Indication: ANTIFUNGAL TREATMENT
     Dosage: UNK
     Route: 065
     Dates: end: 20120724
  7. ANTIVIRALS NOS [Concomitant]
     Indication: ANTIVIRAL PROPHYLAXIS
     Dosage: UNK
     Route: 065
  8. ANTIBACTERIAL NOS [Concomitant]
     Indication: ANTIBIOTIC PROPHYLAXIS
     Dosage: UNK
     Route: 065
  9. ZOFRAN [Concomitant]
     Indication: PRODUCT USED FOR UNKNOWN INDICATION
     Dosage: 8 mg, 1 tablet every 8 hours as needed
     Route: 048
  10. HEPARIN [Concomitant]
     Indication: PRODUCT USED FOR UNKNOWN INDICATION
     Dosage: 100 U/ml, qd
     Route: 042
  11. MICAFUNGIN [Concomitant]
     Indication: PRODUCT USED FOR UNKNOWN INDICATION
     Dosage: 100 mg, qd
     Route: 042
  12. PENTAMIDINE [Concomitant]
     Indication: PRODUCT USED FOR UNKNOWN INDICATION
     Dosage: 300 mg, IV infusion every 21 days
     Route: 042
     Dates: start: 20120716
  13. TACROLIMUS [Concomitant]
     Indication: PRODUCT USED FOR UNKNOWN INDICATION
     Dosage: 1 mg, 4 capsules, q12hr
     Route: 048
  14. PROTONIX [Concomitant]
     Indication: PRODUCT USED FOR UNKNOWN INDICATION
     Dosage: 40 mg, qd
     Route: 048
  15. VALACICLOVIR [Concomitant]
     Indication: PRODUCT USED FOR UNKNOWN INDICATION
     Dosage: 500 mg, qd
     Route: 048
  16. SOLU MEDROL [Concomitant]
     Indication: PRODUCT USED FOR UNKNOWN INDICATION
     Dosage: 60 mg, UNK
     Route: 065

REACTIONS (11)
  - White blood cell count decreased [Not Recovered/Not Resolved]
  - Aspartate aminotransferase increased [Recovered/Resolved]
  - Blood bilirubin increased [Recovered/Resolved]
  - Hepatic function abnormal [Recovered/Resolved]
  - Alanine aminotransferase increased [Recovered/Resolved]
  - Graft versus host disease [Recovered/Resolved]
  - Jaundice [Recovered/Resolved with Sequelae]
  - Haematuria [Recovered/Resolved]
  - Diarrhoea [Recovered/Resolved]
  - Platelet count decreased [Not Recovered/Not Resolved]
  - Fatigue [Not Recovered/Not Resolved]
